FAERS Safety Report 8425673-8 (Version None)
Quarter: 2012Q2

REPORT INFORMATION
  Report Type: 
  Country: None (occurrence: None)
  Receive Date: 20120611
  Receipt Date: 20120601
  Transmission Date: 20120825
  Serious: Yes (Other)
  Sender: FDA-Public Use
  Company Number: US-JNJFOC-20111203757

PATIENT
  Age: 46 Year
  Sex: Female

DRUGS (10)
  1. ASTELIN [Concomitant]
     Route: 065
  2. CALCIUM WITH VITAMIN D [Concomitant]
     Route: 065
  3. REMICADE [Suspect]
     Route: 042
     Dates: start: 20120417
  4. ASACOL [Concomitant]
     Route: 065
  5. LOTREL [Concomitant]
     Route: 065
  6. NEXIUM [Concomitant]
     Route: 065
  7. REMICADE [Suspect]
     Indication: COLITIS ULCERATIVE
     Route: 042
     Dates: start: 20120223
  8. REMICADE [Suspect]
     Route: 042
     Dates: start: 20101001, end: 20111001
  9. VITAMIN A [Concomitant]
     Route: 065
  10. HYDROCHLOROTHIAZIDE [Concomitant]
     Route: 065

REACTIONS (1)
  - BREAST CANCER [None]
